FAERS Safety Report 7245722-2 (Version None)
Quarter: 2011Q1

REPORT INFORMATION
  Report Type: 
  Country: None (occurrence: None)
  Receive Date: 20110126
  Receipt Date: 20110113
  Transmission Date: 20110831
  Serious: Yes (Hospitalization)
  Sender: FDA-Public Use
  Company Number: US-ACTELION-A-US2010-42787

PATIENT

DRUGS (3)
  1. AMBRISENTAN [Concomitant]
  2. EPOPROSTENOL SODIUM [Suspect]
     Indication: PULMONARY ARTERIAL HYPERTENSION
     Dosage: 17.5 UG/KG, PER MIN
     Route: 042
     Dates: start: 20100801
  3. PLAVIX [Concomitant]
     Dosage: 75 MG, QD
     Route: 048

REACTIONS (4)
  - THROMBOSIS IN DEVICE [None]
  - PAIN IN JAW [None]
  - BACK PAIN [None]
  - ABDOMINAL DISTENSION [None]
